FAERS Safety Report 21166867 (Version 1)
Quarter: 2022Q3

REPORT INFORMATION
  Report Type: Spontaneous
  Country: US (occurrence: None)
  Receive Date: 20220802
  Receipt Date: 20220802
  Transmission Date: 20221027
  Serious: No
  Sender: FDA-Public Use
  Company Number: None

PATIENT
  Age: 47 Year
  Sex: Female

DRUGS (1)
  1. CABENUVA [Suspect]
     Active Substance: CABOTEGRAVIR\RILPIVIRINE
     Dosage: 2ML + 2ML MONTHLY IM INJECTION?
     Route: 030
     Dates: start: 20220221

REACTIONS (3)
  - Pain [None]
  - Arthralgia [None]
  - Injection site pain [None]

NARRATIVE: CASE EVENT DATE: 20220221
